FAERS Safety Report 9887845 (Version 2)
Quarter: 2014Q1

REPORT INFORMATION
  Report Type: Spontaneous
  Country: MX (occurrence: MX)
  Receive Date: 20140211
  Receipt Date: 20140216
  Transmission Date: 20141002
  Serious: Yes (Death)
  Sender: FDA-Public Use
  Company Number: MX-US-EMD SERONO, INC.-7268726

PATIENT
  Sex: Male
  Weight: 25 kg

DRUGS (1)
  1. SAIZEN [Suspect]
     Indication: BODY HEIGHT BELOW NORMAL
     Route: 058
     Dates: start: 20100805

REACTIONS (1)
  - Death [Fatal]
